FAERS Safety Report 9142805 (Version 2)
Quarter: 2013Q2

REPORT INFORMATION
  Report Type: Spontaneous
  Country: US (occurrence: US)
  Receive Date: 20130306
  Receipt Date: 20130409
  Transmission Date: 20140414
  Serious: Yes (Other)
  Sender: FDA-Public Use
  Company Number: US-ELI_LILLY_AND_COMPANY-US201302009798

PATIENT
  Sex: Male

DRUGS (1)
  1. HUMALOG 25% LISPRO, 75% NPL [Suspect]
     Indication: DIABETES MELLITUS
     Dosage: 16 U, QD

REACTIONS (4)
  - Transient ischaemic attack [Recovered/Resolved with Sequelae]
  - Hypoacusis [Not Recovered/Not Resolved]
  - Musculoskeletal stiffness [Not Recovered/Not Resolved]
  - Memory impairment [Not Recovered/Not Resolved]
